FAERS Safety Report 17998366 (Version 1)
Quarter: 2020Q3

REPORT INFORMATION
  Report Type: Spontaneous
  Country: US (occurrence: US)
  Receive Date: 20200709
  Receipt Date: 20200709
  Transmission Date: 20201103
  Serious: Yes (Hospitalization, Other)
  Sender: FDA-Public Use
  Company Number: US-CELLTRION INC.-2020US023976

PATIENT

DRUGS (1)
  1. INFLIXIMAB (UNKNOWN) [Suspect]
     Active Substance: INFLIXIMAB
     Indication: CROHN^S DISEASE
     Dosage: EVERY SIX WEEKS
     Route: 065

REACTIONS (9)
  - Coronary artery thrombosis [Recovered/Resolved]
  - Product use issue [Unknown]
  - Acute myocardial infarction [Recovered/Resolved]
  - Diarrhoea [Unknown]
  - Coronary artery occlusion [Recovered/Resolved]
  - Accelerated idioventricular rhythm [Unknown]
  - Leukocytosis [Unknown]
  - Hepatic enzyme increased [Unknown]
  - Low density lipoprotein increased [Unknown]
